FAERS Safety Report 14839032 (Version 2)
Quarter: 2018Q2

REPORT INFORMATION
  Report Type: Spontaneous
  Country: GB (occurrence: GB)
  Receive Date: 20180502
  Receipt Date: 20180614
  Transmission Date: 20180711
  Serious: Yes (Death, Other)
  Sender: FDA-Public Use
  Company Number: GB-PFIZER INC-2018175994

PATIENT
  Age: 17 Year
  Sex: Female
  Weight: 47 kg

DRUGS (3)
  1. SENNOSIDE A+B [Concomitant]
     Active Substance: SENNOSIDES A AND B
     Indication: LAXATIVE SUPPORTIVE CARE
     Dosage: UNK
  2. ADRIAMYCIN [Suspect]
     Active Substance: DOXORUBICIN HYDROCHLORIDE
     Indication: SOFT TISSUE SARCOMA
     Dosage: 75 MG/M2, GIVEN 3 WEEKLY FOR 3 COURSES
     Route: 042
     Dates: start: 20180103, end: 20180214
  3. IFOSFAMIDE. [Suspect]
     Active Substance: IFOSFAMIDE
     Indication: SOFT TISSUE SARCOMA
     Dosage: 5 MG/M2, GIVEN 3 WEEKLY FOR 3 COURSES
     Route: 042
     Dates: start: 20180103, end: 20180214

REACTIONS (4)
  - Multiple organ dysfunction syndrome [Not Recovered/Not Resolved]
  - Sepsis [Not Recovered/Not Resolved]
  - Pancytopenia [Not Recovered/Not Resolved]
  - Bone marrow failure [Fatal]

NARRATIVE: CASE EVENT DATE: 20180222
